FAERS Safety Report 6889422-7 (Version None)
Quarter: 2010Q3

REPORT INFORMATION
  Report Type: 
  Country: None (occurrence: None)
  Receive Date: 20100730
  Receipt Date: 20080307
  Transmission Date: 20110219
  Serious: Yes (Other)
  Sender: FDA-Public Use
  Company Number: US-PFIZER INC-2008014981

PATIENT
  Sex: Female

DRUGS (2)
  1. LIPITOR [Suspect]
  2. ANTIHYPERTENSIVES [Concomitant]

REACTIONS (1)
  - TENDON RUPTURE [None]
